FAERS Safety Report 18081592 (Version 1)
Quarter: 2020Q3

REPORT INFORMATION
  Report Type: Spontaneous
  Country: US (occurrence: US)
  Receive Date: 20200728
  Receipt Date: 20200728
  Transmission Date: 20201103
  Serious: Yes (Death, Hospitalization, Disabling, Other)
  Sender: FDA-Public Use
  Company Number: US-PURDUE-USA-2020-0159419

PATIENT
  Sex: Male

DRUGS (2)
  1. DILAUDID [Suspect]
     Active Substance: HYDROMORPHONE HYDROCHLORIDE
     Indication: PRODUCT USED FOR UNKNOWN INDICATION
     Dosage: UNK
     Route: 048
  2. OXYCONTIN [Suspect]
     Active Substance: OXYCODONE HYDROCHLORIDE
     Indication: PAIN
     Dosage: UNK
     Route: 048
     Dates: start: 20040724

REACTIONS (10)
  - Hypertension [Unknown]
  - Drug dependence [Unknown]
  - Overdose [Recovered/Resolved]
  - Product prescribing error [Unknown]
  - Withdrawal syndrome [Unknown]
  - Death [Fatal]
  - Apnoea [Unknown]
  - Disability [Unknown]
  - Arrhythmia [Unknown]
  - Hyperhidrosis [Unknown]
